FAERS Safety Report 20010878 (Version 1)
Quarter: 2021Q4

REPORT INFORMATION
  Report Type: Spontaneous
  Country: SE (occurrence: SE)
  Receive Date: 20211029
  Receipt Date: 20211029
  Transmission Date: 20220303
  Serious: Yes (Other)
  Sender: FDA-Public Use
  Company Number: None

PATIENT
  Age: 40 Year
  Sex: Female

DRUGS (1)
  1. MABTHERA [Suspect]
     Active Substance: RITUXIMAB
     Indication: Multiple sclerosis
     Dosage: 500 MG
     Route: 065
     Dates: start: 20160315, end: 20201218

REACTIONS (3)
  - Infection [Unknown]
  - Neutropenia [Unknown]
  - Blood immunoglobulin A decreased [Unknown]

NARRATIVE: CASE EVENT DATE: 20201218
